FAERS Safety Report 10330890 (Version 6)
Quarter: 2015Q2

REPORT INFORMATION
  Report Type: Report from Study
  Country: DE (occurrence: DE)
  Receive Date: 20140722
  Receipt Date: 20150501
  Transmission Date: 20150821
  Serious: Yes (Hospitalization)
  Sender: FDA-Public Use
  Company Number: DE-MERCK-1310DEU005863

PATIENT
  Age: 65 Year
  Sex: Male
  Weight: 73 kg

DRUGS (12)
  1. HYDROMORPHONE [Concomitant]
     Active Substance: HYDROMORPHONE
     Indication: METASTATIC PAIN
     Dosage: 6 MG, BID, FORMULATION: PILL
     Route: 048
     Dates: start: 20130921, end: 20131006
  2. MOVICOL [Concomitant]
     Active Substance: POLYETHYLENE GLYCOL 3350\POTASSIUM CHLORIDE\SODIUM BICARBONATE\SODIUM CHLORIDE
     Indication: CONSTIPATION
     Dosage: TOTAL DAILY DOSE:4 PACKET, PRN
     Route: 048
     Dates: start: 20130921, end: 20131114
  3. METAMIZOL [Concomitant]
     Active Substance: METAMIZOLE SODIUM
     Indication: PAIN
     Dosage: TOTAL DAILY DOSE: 4 GRAM, PRN, FORMULATION: PILL
     Route: 048
     Dates: start: 20130921, end: 20131001
  4. PEMBROLIZUMAB. [Suspect]
     Active Substance: PEMBROLIZUMAB
     Indication: MALIGNANT MELANOMA
     Dosage: UNK, Q3W
     Route: 042
     Dates: start: 20130917, end: 20130917
  5. PEMBROLIZUMAB. [Suspect]
     Active Substance: PEMBROLIZUMAB
     Dosage: UNK, Q3W
     Route: 042
     Dates: start: 20131009, end: 20131009
  6. PANTOPRAZOLE [Concomitant]
     Active Substance: PANTOPRAZOLE SODIUM
     Indication: PROPHYLAXIS AGAINST GASTROINTESTINAL ULCER
     Dosage: 40 MG, BID, FORMULATION: PILL
     Route: 048
     Dates: start: 20130627
  7. ITROP [Concomitant]
     Active Substance: IPRATROPIUM
     Indication: BRADYCARDIA
     Dosage: 5 MG, QD, FORMULATION: PILL
     Route: 048
     Dates: start: 20130627, end: 20131010
  8. TESTOGEL [Concomitant]
     Active Substance: TESTOSTERONE
     Indication: HYPOPITUITARISM
     Dosage: 50 MG, QD
     Route: 061
     Dates: start: 20130815
  9. L-THYROXIN [Concomitant]
     Active Substance: LEVOTHYROXINE SODIUM
     Indication: HYPOPITUITARISM
     Dosage: 50 MICROGRAM, QD, FORMULATION: PILL
     Route: 048
     Dates: start: 20130815
  10. HYDROCORTISONE. [Concomitant]
     Active Substance: HYDROCORTISONE
     Indication: METASTASES TO ADRENALS
     Dosage: 10 MG, QD, FORMULATION: PILL
     Route: 048
     Dates: start: 20130627, end: 20131010
  11. HYDROMORPHONE [Concomitant]
     Active Substance: HYDROMORPHONE
     Indication: PAIN
     Dosage: 2 MG, BID, FORMULATION: PILL
     Route: 048
     Dates: start: 20130627, end: 20130920
  12. HYDROCORTISONE. [Concomitant]
     Active Substance: HYDROCORTISONE
     Indication: METASTASES TO ADRENALS
     Dosage: 15 MG, QD, FORMULATION: PILL
     Route: 048
     Dates: start: 20130826, end: 20131010

REACTIONS (2)
  - Hypopituitarism [Not Recovered/Not Resolved]
  - Gastrointestinal disorder [Not Recovered/Not Resolved]

NARRATIVE: CASE EVENT DATE: 20131001
